FAERS Safety Report 25533326 (Version 1)
Quarter: 2025Q3

REPORT INFORMATION
  Report Type: Spontaneous
  Country: JP (occurrence: JP)
  Receive Date: 20250709
  Receipt Date: 20250709
  Transmission Date: 20251020
  Serious: Yes (Hospitalization)
  Sender: MYLAN
  Company Number: JP-MYLANLABS-2025M1055677

PATIENT
  Age: 9 Year
  Sex: Female

DRUGS (4)
  1. ANHIBA [Suspect]
     Active Substance: ACETAMINOPHEN
     Indication: Product used for unknown indication
  2. ANHIBA [Suspect]
     Active Substance: ACETAMINOPHEN
     Route: 054
  3. ANHIBA [Suspect]
     Active Substance: ACETAMINOPHEN
     Route: 054
  4. ANHIBA [Suspect]
     Active Substance: ACETAMINOPHEN

REACTIONS (2)
  - Erythema multiforme [Unknown]
  - Drug eruption [Unknown]
